FAERS Safety Report 17765400 (Version 1)
Quarter: 2020Q2

REPORT INFORMATION
  Report Type: Spontaneous
  Country: US (occurrence: US)
  Receive Date: 20200508
  Receipt Date: 20200508
  Transmission Date: 20200714
  Serious: Yes (Death)
  Sender: FDA-Public Use
  Company Number: None

PATIENT
  Age: 44 Year
  Sex: Female

DRUGS (14)
  1. AJOVY [Concomitant]
     Active Substance: FREMANEZUMAB-VFRM
  2. FYCOMPA [Concomitant]
     Active Substance: PERAMPANEL
  3. ESCITALOPRAM [Concomitant]
     Active Substance: ESCITALOPRAM OXALATE
  4. ZAFIRLUKAST. [Concomitant]
     Active Substance: ZAFIRLUKAST
  5. METHOTREXATE. [Concomitant]
     Active Substance: METHOTREXATE
  6. CLOBAZAM. [Concomitant]
     Active Substance: CLOBAZAM
  7. ZONISAMIDE. [Concomitant]
     Active Substance: ZONISAMIDE
  8. LEVALBUTEROL AER [Concomitant]
  9. EMGALITY [Concomitant]
     Active Substance: GALCANEZUMAB-GNLM
  10. AMITRIPTYLIN [Concomitant]
     Active Substance: AMITRIPTYLINE
  11. HUMIRA [Suspect]
     Active Substance: ADALIMUMAB
     Indication: PSORIATIC ARTHROPATHY
     Dosage: ?          OTHER DOSE:40/0.4 MG/ML;?
     Route: 058
     Dates: start: 20200201, end: 20200418
  12. VISTARIL [Concomitant]
     Active Substance: HYDROXYZINE PAMOATE
  13. MONTELUKAST [Concomitant]
     Active Substance: MONTELUKAST SODIUM
  14. LEVALBUTEROL. [Concomitant]
     Active Substance: LEVALBUTEROL

REACTIONS (1)
  - Death [None]
